FAERS Safety Report 5090117-3 (Version None)
Quarter: 2006Q3

REPORT INFORMATION
  Report Type: 
  Country: None (occurrence: None)
  Receive Date: 20060828
  Receipt Date: 20060818
  Transmission Date: 20061208
  Serious: Yes (Other)
  Sender: FDA-Public Use
  Company Number: BR-ROCHE-460326

PATIENT
  Age: 31 Year
  Sex: Female

DRUGS (3)
  1. ROACUTAN [Suspect]
     Indication: ACNE
     Route: 048
     Dates: start: 20051215, end: 20060615
  2. ROACUTAN [Suspect]
     Route: 048
     Dates: start: 20060615, end: 20060815
  3. CONTRACEPTIVE [Concomitant]
     Indication: CONTRACEPTION
     Dosage: THE PATIENT SOMETIMES FORGOT TO TAKE THE CONTRACEPTIVE.
     Route: 048

REACTIONS (3)
  - DRUG EXPOSURE DURING PREGNANCY [None]
  - NO ADVERSE EFFECT [None]
  - PREGNANCY [None]
